FAERS Safety Report 7093978-1 (Version None)
Quarter: 2010Q4

REPORT INFORMATION
  Report Type: 
  Country: None (occurrence: None)
  Receive Date: 20101102
  Receipt Date: 20101019
  Transmission Date: 20110411
  Serious: Yes (Hospitalization, Other)
  Sender: FDA-Public Use
  Company Number: 018078

PATIENT
  Sex: Male
  Weight: 20.3 kg

DRUGS (5)
  1. LACOSAMIDE [Suspect]
     Indication: PARTIAL SEIZURES
     Dosage: (5 ML BID, 01/SEP/2010 TAKEN ONLY AT AM ORAL) ; (3 ML BID, 01/SEP/2010 STARTED AT PM)
     Route: 048
     Dates: start: 20100523, end: 20100901
  2. LACOSAMIDE [Suspect]
     Indication: PARTIAL SEIZURES
     Dosage: (5 ML BID, 01/SEP/2010 TAKEN ONLY AT AM ORAL) ; (3 ML BID, 01/SEP/2010 STARTED AT PM)
     Route: 048
     Dates: start: 20100901
  3. LAMICTAL [Concomitant]
  4. TRILEPTAL [Concomitant]
  5. DIASTAT [Concomitant]

REACTIONS (14)
  - ACTIVITIES OF DAILY LIVING IMPAIRED [None]
  - ATAXIA [None]
  - CONDITION AGGRAVATED [None]
  - DECREASED INTEREST [None]
  - DROOLING [None]
  - DRUG TOXICITY [None]
  - FEELING ABNORMAL [None]
  - GAIT DISTURBANCE [None]
  - HEMIPARESIS [None]
  - HIGH ARCHED PALATE [None]
  - HYPERREFLEXIA [None]
  - PSYCHOMOTOR SKILLS IMPAIRED [None]
  - SOMNOLENCE [None]
  - SWELLING FACE [None]
